FAERS Safety Report 20102472 (Version 3)
Quarter: 2022Q1

REPORT INFORMATION
  Report Type: Spontaneous
  Country: FI (occurrence: FI)
  Receive Date: 20211123
  Receipt Date: 20220109
  Transmission Date: 20220423
  Serious: Yes (Life-Threatening, Hospitalization)
  Sender: FDA-Public Use
  Company Number: None

PATIENT
  Age: 74 Year
  Sex: Female
  Weight: 89 kg

DRUGS (14)
  1. BRIDION [Suspect]
     Active Substance: SUGAMMADEX
     Indication: Neuromuscular blockade reversal
     Dosage: 200 MG, ONCE
     Route: 042
     Dates: start: 20151208, end: 20151208
  2. ROCURONIUM BROMIDE [Concomitant]
     Active Substance: ROCURONIUM BROMIDE
     Dosage: 120 MG, UNK
     Route: 042
  3. GLYCOSTIGMIN [Concomitant]
     Dosage: 1.5 ML, UNK
     Route: 042
  4. EFEDRIN [EPHEDRINE HYDROCHLORIDE] [Concomitant]
     Dosage: 9 MG, UNK
     Route: 042
  5. CLINDAMYCIN [Concomitant]
     Active Substance: CLINDAMYCIN
     Dosage: 900 MG, UNK
     Route: 042
  6. ONDANSETRON [Concomitant]
     Active Substance: ONDANSETRON
     Dosage: 2 MG, UNK
     Route: 042
  7. MIDAZOLAM [Concomitant]
     Active Substance: MIDAZOLAM
     Dosage: 4 MG, UNK
     Route: 042
  8. FENTANYL [Concomitant]
     Active Substance: FENTANYL
     Dosage: 650 MICROGRAM, UNK
     Route: 042
  9. KETANEST-S [Concomitant]
     Dosage: 15 MG, UNK
     Route: 042
  10. CHIROCAINE [Concomitant]
     Active Substance: LEVOBUPIVACAINE HYDROCHLORIDE
  11. SODIUM CHLORIDE [Concomitant]
     Active Substance: SODIUM CHLORIDE
     Dosage: 150 ML, UNK
  12. SODIUM CHLORIDE [Concomitant]
     Active Substance: SODIUM CHLORIDE
     Dosage: 100 ML, UNK
  13. RINGER-ACETAT BAXTER VIAFLO [Concomitant]
     Dosage: DOSE: 5000 ML
  14. SODIUM CHLORIDE [Concomitant]
     Active Substance: SODIUM CHLORIDE
     Dosage: 100 ML, UNK

REACTIONS (2)
  - Anaphylactic reaction [Recovered/Resolved]
  - Off label use [Unknown]

NARRATIVE: CASE EVENT DATE: 20151208
